FAERS Safety Report 19357992 (Version 1)
Quarter: 2021Q2

REPORT INFORMATION
  Report Type: Other
  Country: US (occurrence: US)
  Receive Date: 20210601
  Receipt Date: 20210601
  Transmission Date: 20210717
  Serious: Yes (Other)
  Sender: FDA-Public Use
  Company Number: US-ROCHE-2836912

PATIENT
  Sex: Female

DRUGS (1)
  1. OCREVUS [Suspect]
     Active Substance: OCRELIZUMAB
     Indication: RELAPSING MULTIPLE SCLEROSIS
     Dosage: 17/AUG/2018, 19/FEB/2019, 14/AUG/2019, 19/FEB/2020 AND 14/SEP/2020
     Route: 065
     Dates: start: 20180803

REACTIONS (1)
  - Cystitis [Recovered/Resolved]
